FAERS Safety Report 21160697 (Version 2)
Quarter: 2022Q3

REPORT INFORMATION
  Report Type: Spontaneous
  Country: US (occurrence: US)
  Receive Date: 20220802
  Receipt Date: 20220912
  Transmission Date: 20221026
  Serious: Yes (Death, Life-Threatening)
  Sender: FDA-Public Use
  Company Number: US-SHIONOGI, INC-2022000474

PATIENT
  Age: 72 Year
  Sex: Female
  Weight: 48 kg

DRUGS (10)
  1. FETROJA [Suspect]
     Active Substance: CEFIDEROCOL SULFATE TOSYLATE
     Indication: Urinary tract infection pseudomonal
     Dosage: 1 G, 8 HOUR
     Route: 042
     Dates: start: 20220727, end: 20220728
  2. FETROJA [Suspect]
     Active Substance: CEFIDEROCOL SULFATE TOSYLATE
     Indication: Bacterial infection
  3. AMIKACIN [Concomitant]
     Active Substance: AMIKACIN
     Indication: Urinary tract infection pseudomonal
     Dosage: 300 MG, QD
     Route: 065
  4. AMIKACIN [Concomitant]
     Active Substance: AMIKACIN
     Indication: Bacterial infection
  5. ROCEPHIN [Concomitant]
     Active Substance: CEFTRIAXONE SODIUM
     Indication: Urinary tract infection pseudomonal
     Dosage: 1 G, QD
     Route: 065
  6. ROCEPHIN [Concomitant]
     Active Substance: CEFTRIAXONE SODIUM
     Indication: Bacterial infection
  7. ZERBAXA [Concomitant]
     Active Substance: CEFTOLOZANE SULFATE\TAZOBACTAM SODIUM
     Indication: Urinary tract infection pseudomonal
     Dosage: 1.5 UNK, 8 HOUR
     Route: 065
     Dates: start: 20220722, end: 20220724
  8. ZERBAXA [Concomitant]
     Active Substance: CEFTOLOZANE SULFATE\TAZOBACTAM SODIUM
     Indication: Bacterial infection
  9. COLISTIN [Concomitant]
     Active Substance: COLISTIN
     Indication: Urinary tract infection pseudomonal
     Dosage: UNK
     Route: 042
     Dates: start: 20220724, end: 20220727
  10. COLISTIN [Concomitant]
     Active Substance: COLISTIN
     Indication: Bacterial infection

REACTIONS (2)
  - Cardio-respiratory arrest [Fatal]
  - Respiratory failure [Unknown]

NARRATIVE: CASE EVENT DATE: 20220728
